FAERS Safety Report 13876249 (Version 1)
Quarter: 2017Q3

REPORT INFORMATION
  Report Type: Spontaneous
  Country: US (occurrence: US)
  Receive Date: 20170817
  Receipt Date: 20170817
  Transmission Date: 20171127
  Serious: No
  Sender: FDA-Public Use
  Company Number: US-PFIZER INC-2017348888

PATIENT
  Age: 67 Year
  Sex: Female
  Weight: 87.53 kg

DRUGS (1)
  1. PRISTIQ EXTENDED-RELEASE [Suspect]
     Active Substance: DESVENLAFAXINE SUCCINATE
     Indication: DEPRESSION
     Dosage: 50 MG, DAILY
     Dates: start: 20170414

REACTIONS (14)
  - Fatigue [Unknown]
  - Crying [Unknown]
  - Agitation [Unknown]
  - Paranoia [Unknown]
  - Increased appetite [Unknown]
  - Judgement impaired [Unknown]
  - Constricted affect [Unknown]
  - Anxiety [Unknown]
  - Nightmare [Unknown]
  - Restlessness [Unknown]
  - Memory impairment [Unknown]
  - Sleep terror [Unknown]
  - Asthenia [Unknown]
  - Sleep disorder [Unknown]
